FAERS Safety Report 19885119 (Version 3)
Quarter: 2021Q4

REPORT INFORMATION
  Report Type: Report from Study
  Country: ES (occurrence: None)
  Receive Date: 20210927
  Receipt Date: 20211221
  Transmission Date: 20220303
  Serious: Yes (Other)
  Sender: FDA-Public Use
  Company Number: ES-ROCHE-2919894

PATIENT

DRUGS (10)
  1. TOCILIZUMAB [Suspect]
     Active Substance: TOCILIZUMAB
     Indication: COVID-19 pneumonia
     Route: 042
     Dates: start: 20200517
  2. MEROPENEM [Concomitant]
     Active Substance: MEROPENEM
     Indication: Pneumonia
     Dates: start: 20200515, end: 20200525
  3. HYDROXYCHLOROQUINE [Concomitant]
     Active Substance: HYDROXYCHLOROQUINE
     Indication: COVID-19 treatment
     Dates: start: 20200515, end: 20200520
  4. AZITHROMYCIN [Concomitant]
     Active Substance: AZITHROMYCIN
     Indication: COVID-19 treatment
     Dates: start: 20200515, end: 20200520
  5. VANCOMYCIN [Concomitant]
     Active Substance: VANCOMYCIN
     Indication: Pneumonia
     Dates: start: 20200515, end: 20200525
  6. LOPINAVIR [Concomitant]
     Active Substance: LOPINAVIR
     Indication: COVID-19 treatment
     Dates: start: 20200515, end: 20200529
  7. RITONAVIR [Concomitant]
     Active Substance: RITONAVIR
     Indication: COVID-19 treatment
     Dates: start: 20200515, end: 20200529
  8. DOXAZOSIN [Concomitant]
     Active Substance: DOXAZOSIN MESYLATE
     Indication: Hypertension
     Dates: start: 20200515, end: 20200529
  9. AMPHOTERICIN B [Concomitant]
     Active Substance: AMPHOTERICIN B
     Indication: Fungal infection
     Dates: start: 20200525, end: 20200529
  10. POSACONAZOLE [Concomitant]
     Active Substance: POSACONAZOLE
     Indication: Fungal infection
     Dates: start: 20200529, end: 20200626

REACTIONS (1)
  - Acute respiratory failure [Recovered/Resolved with Sequelae]

NARRATIVE: CASE EVENT DATE: 20200517
